FAERS Safety Report 13104215 (Version 1)
Quarter: 2017Q1

REPORT INFORMATION
  Report Type: Spontaneous
  Country: US (occurrence: US)
  Receive Date: 20170111
  Receipt Date: 20170111
  Transmission Date: 20170428
  Serious: Yes (Hospitalization)
  Sender: FDA-Public Use
  Company Number: None

PATIENT
  Age: 24 Year
  Sex: Female

DRUGS (1)
  1. TACROLIMUS CAP 1MG [Suspect]
     Active Substance: TACROLIMUS
     Indication: HAEMOGLOBINURIA

REACTIONS (4)
  - Ectopic pregnancy [None]
  - Exposure during pregnancy [None]
  - Metabolic disorder [None]
  - Benign hydatidiform mole [None]

NARRATIVE: CASE EVENT DATE: 20170110
